FAERS Safety Report 9252450 (Version 1)
Quarter: 2013Q1

REPORT INFORMATION
  Report Type: Spontaneous
  Country: US (occurrence: None)
  Receive Date: 20130305
  Receipt Date: 20130305
  Transmission Date: 20140127
  Serious: Yes (Hospitalization, Other)
  Sender: FDA-Public Use
  Company Number: 163-21880-12083068

PATIENT
  Age: 75 Year
  Sex: Female
  Weight: 63.96 kg

DRUGS (13)
  1. REVLIMID [Suspect]
     Indication: PLASMA CELL MYELOMA
     Dosage: 1 IN 1 D
     Route: 048
     Dates: start: 20111008
  2. ATENOLOL (ATENOLOL) [Concomitant]
  3. PROCHLORPERAZINE (PROCHLORPERAZINE) [Concomitant]
  4. AMLODIPINE (AMLODIPINE) [Concomitant]
  5. VELCADE (BORTEZOMIB) [Concomitant]
  6. ASPIRIN (ACETYLSALICYLIC ACID) [Concomitant]
  7. DEXAMETHASONE (DEXAMETHASONE) [Concomitant]
  8. BENZONATATE (BENZONATATE) [Concomitant]
  9. CALCIUM (CALCIUM) [Concomitant]
  10. IRON (IRON) [Concomitant]
  11. LISINOPRIL (LISINOPRIL) [Concomitant]
  12. MELATONIN (MELATONIN) [Concomitant]
  13. NAPROXEN (NAPROXEN) [Concomitant]

REACTIONS (1)
  - Thrombosis [None]
